FAERS Safety Report 25351716 (Version 1)
Quarter: 2025Q2

REPORT INFORMATION
  Report Type: Report from Study
  Country: US (occurrence: US)
  Receive Date: 20250523
  Receipt Date: 20250523
  Transmission Date: 20250716
  Serious: Yes (Other)
  Sender: AUROBINDO
  Company Number: US-AUROBINDO-AUR-APL-2022-043139

PATIENT
  Age: 77 Year
  Sex: Male

DRUGS (6)
  1. CARBOPLATIN [Suspect]
     Active Substance: CARBOPLATIN
     Indication: Non-small cell lung cancer
     Route: 065
  2. ERLOTINIB [Suspect]
     Active Substance: ERLOTINIB
     Indication: Non-small cell lung cancer
     Route: 065
  3. PEMETREXED [Suspect]
     Active Substance: PEMETREXED
     Indication: Non-small cell lung cancer
     Route: 065
  4. ATEZOLIZUMAB [Suspect]
     Active Substance: ATEZOLIZUMAB
     Indication: Non-small cell lung cancer
     Route: 065
  5. BEVACIZUMAB [Suspect]
     Active Substance: BEVACIZUMAB
     Indication: Non-small cell lung cancer
     Route: 065
  6. PACLITAXEL [Suspect]
     Active Substance: PACLITAXEL
     Indication: Non-small cell lung cancer
     Route: 065

REACTIONS (2)
  - Drug ineffective [Unknown]
  - Drug resistance [Unknown]
